FAERS Safety Report 26002549 (Version 1)
Quarter: 2025Q4

REPORT INFORMATION
  Report Type: Spontaneous
  Country: GB (occurrence: GB)
  Receive Date: 20251105
  Receipt Date: 20251105
  Transmission Date: 20260118
  Serious: Yes (Hospitalization, Other)
  Sender: ALKEM
  Company Number: None

PATIENT
  Age: 86 Year
  Sex: Female
  Weight: 59 kg

DRUGS (14)
  1. FOSFOMYCIN [Suspect]
     Active Substance: FOSFOMYCIN
     Indication: Product used for unknown indication
     Dosage: UNK
     Route: 065
  2. GLUCOSAMINE [Suspect]
     Active Substance: GLUCOSAMINE
     Indication: Product used for unknown indication
     Dosage: UNK
     Route: 065
  3. LANREOTIDE [Suspect]
     Active Substance: LANREOTIDE
     Indication: Neuroendocrine tumour
     Dosage: 120 MILLIGRAM (120MG/0.5ML SOLUTION FOR INJECTION PRE-FILLED SYRINGES, 1 PRE-FILLED DISPOSABLE INJEC
     Route: 058
     Dates: start: 20231221
  4. LANREOTIDE [Suspect]
     Active Substance: LANREOTIDE
     Dosage: 120 MILLIGRAM (120MG/0.5ML SOLUTION FOR INJECTION PRE-FILLED SYRINGES, 1 PRE-FILLED DISPOSABLE INJEC
     Route: 058
  5. LANREOTIDE [Suspect]
     Active Substance: LANREOTIDE
     Dosage: UNK (120 MILLIGRAM INJECTION)
     Route: 065
  6. LANREOTIDE [Suspect]
     Active Substance: LANREOTIDE
     Dosage: 120 MILLIGRAM (120MG/0.5ML SOLUTION FOR INJECTION PRE-FILLED SYRINGES, 1 PRE-FILLED DISPOSABLE INJEC
     Route: 058
  7. NITROFURANTOIN [Suspect]
     Active Substance: NITROFURANTOIN
     Indication: Product used for unknown indication
     Dosage: UNK
     Route: 065
  8. TRIMETHOPRIM [Suspect]
     Active Substance: TRIMETHOPRIM
     Indication: Product used for unknown indication
     Dosage: UNK
     Route: 065
  9. ALLOPURINOL [Concomitant]
     Active Substance: ALLOPURINOL
     Indication: Product used for unknown indication
     Dosage: UNK
     Route: 065
  10. ATENOLOL\CHLORTHALIDONE [Concomitant]
     Active Substance: ATENOLOL\CHLORTHALIDONE
     Indication: Product used for unknown indication
     Dosage: UNK
     Route: 065
  11. Isosorbide mono [Concomitant]
     Indication: Product used for unknown indication
     Dosage: UNK
     Route: 065
  12. LISINOPRIL [Concomitant]
     Active Substance: LISINOPRIL
     Indication: Product used for unknown indication
     Dosage: UNK
     Route: 065
  13. OMEPRAZOLE [Concomitant]
     Active Substance: OMEPRAZOLE
     Indication: Product used for unknown indication
     Dosage: UNK
     Route: 065
  14. MORPHINE SULFATE [Concomitant]
     Active Substance: MORPHINE SULFATE
     Indication: Product used for unknown indication
     Dosage: UNK (4 HOURLY)
     Route: 065

REACTIONS (23)
  - Biliary obstruction [Recovering/Resolving]
  - Dysphagia [Unknown]
  - Lower respiratory tract infection [Unknown]
  - Hepatic neoplasm [Unknown]
  - Jaundice [Recovering/Resolving]
  - Urinary tract infection [Recovering/Resolving]
  - Fatigue [Unknown]
  - Malaise [Recovered/Resolved]
  - Drug hypersensitivity [Unknown]
  - Oesophagitis [Unknown]
  - Neuroendocrine tumour [Unknown]
  - Fall [Not Recovered/Not Resolved]
  - Balance disorder [Not Recovered/Not Resolved]
  - Gait disturbance [Not Recovered/Not Resolved]
  - Blood pressure increased [Not Recovered/Not Resolved]
  - Urinary tract infection [Unknown]
  - Pain [Recovered/Resolved]
  - Abdominal pain upper [Unknown]
  - Diarrhoea [Unknown]
  - Asthenia [Unknown]
  - Dizziness [Not Recovered/Not Resolved]
  - Condition aggravated [Unknown]
  - Product dose omission issue [Unknown]

NARRATIVE: CASE EVENT DATE: 20240410
